FAERS Safety Report 12501627 (Version 1)
Quarter: 2016Q2

REPORT INFORMATION
  Report Type: Spontaneous
  Country: US (occurrence: US)
  Receive Date: 20160627
  Receipt Date: 20160627
  Transmission Date: 20160815
  Serious: No
  Sender: FDA-Public Use
  Company Number: US-AMGEN-USASP2016081623

PATIENT
  Age: 67 Year
  Sex: Female

DRUGS (1)
  1. ENBREL [Suspect]
     Active Substance: ETANERCEPT
     Indication: RHEUMATOID ARTHRITIS
     Dosage: UNK
     Route: 065

REACTIONS (8)
  - Dry mouth [Unknown]
  - Arthropathy [Unknown]
  - Bladder disorder [Unknown]
  - Drug effect incomplete [Unknown]
  - Balance disorder [Unknown]
  - Fall [Unknown]
  - Tooth extraction [Unknown]
  - Endodontic procedure [Unknown]
